FAERS Safety Report 8124549-3 (Version None)
Quarter: 2012Q1

REPORT INFORMATION
  Report Type: 
  Country: None (occurrence: None)
  Receive Date: 20120209
  Receipt Date: 20120126
  Transmission Date: 20120608
  Serious: Yes (Death)
  Sender: FDA-Public Use
  Company Number: US-ASTELLAS-2012US000603

PATIENT
  Sex: Male
  Weight: 52 kg

DRUGS (3)
  1. MORPHINE [Concomitant]
     Indication: PAIN
     Dosage: 5 MG, UNKNOWN/D
     Route: 048
  2. TARCEVA [Suspect]
     Indication: LUNG NEOPLASM MALIGNANT
     Dosage: 150 MG, UID/QD
     Route: 048
     Dates: start: 20101201, end: 20110725
  3. AUGMENTIN '125' [Concomitant]
     Indication: PNEUMONIA
     Dosage: 1750 MG, UID/QD
     Route: 048
     Dates: start: 20110728

REACTIONS (1)
  - DEATH [None]
